FAERS Safety Report 9422926 (Version 4)
Quarter: 2015Q2

REPORT INFORMATION
  Report Type: Spontaneous
  Country: US (occurrence: US)
  Receive Date: 20130726
  Receipt Date: 20150525
  Transmission Date: 20150821
  Serious: Yes (Other)
  Sender: FDA-Public Use
  Company Number: US-JNJFOC-20130712433

PATIENT
  Age: 49 Year
  Sex: Male
  Weight: 79.38 kg

DRUGS (11)
  1. LEVAQUIN [Concomitant]
     Active Substance: LEVOFLOXACIN
     Route: 065
  2. CALCIUM [Concomitant]
     Active Substance: CALCIUM
     Dosage: WITH MEALS
     Route: 065
  3. REMICADE [Suspect]
     Active Substance: INFLIXIMAB
     Indication: SERONEGATIVE ARTHRITIS
     Route: 042
  4. ZEGERID [Concomitant]
     Active Substance: OMEPRAZOLE\SODIUM BICARBONATE
     Dosage: 40-1100 MG ON AN EMPTY STOMACH TWICE A DAY.
     Route: 065
  5. REMICADE [Suspect]
     Active Substance: INFLIXIMAB
     Indication: SERONEGATIVE ARTHRITIS
     Dosage: 100 MG STRENGTH, REINTRODUCED
     Route: 042
     Dates: start: 20130228
  6. CITALOPRAM HYDROBROMIDE. [Concomitant]
     Active Substance: CITALOPRAM HYDROBROMIDE
     Route: 065
  7. FISH OIL [Concomitant]
     Active Substance: FISH OIL
     Dosage: WITH A MEAL
     Route: 065
  8. PREDNISONE. [Concomitant]
     Active Substance: PREDNISONE
     Dosage: THREE 20 MG TABLET WITH FOOD OR MILK
     Route: 048
  9. CIPROFLOXACIN HCL [Concomitant]
     Active Substance: CIPROFLOXACIN HYDROCHLORIDE
     Dosage: 1 TABLET WITH THE EVENING MEAL ONCE A DAY.
     Route: 065
  10. VITAMIN C [Concomitant]
     Active Substance: ASCORBIC ACID
     Route: 065
  11. PROBIOTIC [Concomitant]
     Active Substance: PROBIOTICS NOS
     Dosage: AS DIRECTED
     Route: 065

REACTIONS (6)
  - Joint swelling [Recovered/Resolved]
  - Pyrexia [Unknown]
  - Pleurisy [Unknown]
  - Rash erythematous [Recovered/Resolved]
  - Pain [Recovered/Resolved]
  - Fatigue [Unknown]

NARRATIVE: CASE EVENT DATE: 201303
